FAERS Safety Report 4867358-0 (Version None)
Quarter: 2005Q4

REPORT INFORMATION
  Report Type: 
  Country: None (occurrence: None)
  Receive Date: 20051222
  Receipt Date: 20051210
  Transmission Date: 20060501
  Serious: Yes (Other)
  Sender: FDA-Public Use
  Company Number: 2005167233

PATIENT
  Age: 67 Year
  Sex: Female

DRUGS (18)
  1. LYRICA [Suspect]
     Indication: HERPES ZOSTER
     Dosage: 100 MG (50 MG, 2 IN 1 D), ORAL
     Route: 048
     Dates: start: 20051121
  2. LYRICA [Suspect]
     Indication: NEUROPATHY
     Dosage: 100 MG (50 MG, 2 IN 1 D), ORAL
     Route: 048
     Dates: start: 20051121
  3. COZAAR [Concomitant]
  4. LOZOL [Concomitant]
  5. CLONIDINE [Concomitant]
  6. COREG [Concomitant]
  7. PREMPRO [Concomitant]
  8. PROZAC [Concomitant]
  9. SKELAXIN [Concomitant]
  10. FOLIC ACID [Concomitant]
  11. ACTONEL [Concomitant]
  12. LOVASTATIN [Concomitant]
  13. IRON (IRON) [Concomitant]
  14. PROTONIX [Concomitant]
  15. AMARYL [Concomitant]
  16. TAMSULOSIN HCL [Concomitant]
  17. ALLEGRA [Concomitant]
  18. PRILOSEC [Concomitant]

REACTIONS (11)
  - BLOOD GLUCOSE DECREASED [None]
  - BLOOD GLUCOSE INCREASED [None]
  - DISTURBANCE IN ATTENTION [None]
  - DYSURIA [None]
  - FALL [None]
  - LOSS OF CONSCIOUSNESS [None]
  - OEDEMA PERIPHERAL [None]
  - TREATMENT NONCOMPLIANCE [None]
  - URINE FLOW DECREASED [None]
  - VISION BLURRED [None]
  - WEIGHT INCREASED [None]
